FAERS Safety Report 25180674 (Version 1)
Quarter: 2025Q2

REPORT INFORMATION
  Report Type: Report from Study
  Country: US (occurrence: US)
  Receive Date: 20250409
  Receipt Date: 20250409
  Transmission Date: 20250717
  Serious: Yes (Other)
  Sender: GILEAD
  Company Number: US-GILEAD-2025-0709739

PATIENT
  Sex: Female

DRUGS (1)
  1. SOFOSBUVIR\VELPATASVIR [Suspect]
     Active Substance: SOFOSBUVIR\VELPATASVIR
     Indication: Chronic hepatitis C
     Dosage: 400MG/100MG- TAKE 1 TABLET BY MOUTH DAILY
     Route: 048
     Dates: start: 20250312

REACTIONS (3)
  - Blindness [Unknown]
  - Memory impairment [Not Recovered/Not Resolved]
  - Multiple allergies [Unknown]
